FAERS Safety Report 4613133-1 (Version None)
Quarter: 2005Q1

REPORT INFORMATION
  Report Type: 
  Country: None (occurrence: None)
  Receive Date: 20050316
  Receipt Date: 20050228
  Transmission Date: 20050727
  Serious: Yes (Hospitalization, Other)
  Sender: FDA-Public Use
  Company Number: USA050291928

PATIENT
  Age: 69 Year
  Sex: Female

DRUGS (2)
  1. HUMULIN 70/30 [Suspect]
     Dates: start: 19900101
  2. HUMULIN R [Suspect]
     Dates: start: 20050201

REACTIONS (2)
  - CEREBROVASCULAR ACCIDENT [None]
  - OPTIC NEUROPATHY [None]
